FAERS Safety Report 8809645 (Version 1)
Quarter: 2012Q4

REPORT INFORMATION
  Report Type: 
  Country: US (occurrence: US)
  Receive Date: 20120926
  Receipt Date: 20120926
  Transmission Date: 20130627
  Serious: No
  Sender: FDA-Public Use
  Company Number: US-ASTRAZENECA-2012SE70251

PATIENT
  Age: 60 Year
  Sex: Female
  Weight: 81.6 kg

DRUGS (4)
  1. NEXIUM [Suspect]
     Indication: GASTROOESOPHAGEAL REFLUX DISEASE
     Route: 048
     Dates: start: 2008, end: 20120430
  2. NEXIUM [Suspect]
     Indication: GASTROOESOPHAGEAL REFLUX DISEASE
     Route: 048
     Dates: start: 20120530
  3. QUINIPRIL [Concomitant]
     Indication: HYPERTENSION
  4. PANTOPRAZOLE SOD [Concomitant]

REACTIONS (3)
  - Hiatus hernia [Unknown]
  - Disease recurrence [Recovered/Resolved]
  - Gastric mucosal lesion [Unknown]
